FAERS Safety Report 19697006 (Version 1)
Quarter: 2021Q3

REPORT INFORMATION
  Report Type: Spontaneous
  Country: US (occurrence: US)
  Receive Date: 20210813
  Receipt Date: 20210813
  Transmission Date: 20211014
  Serious: No
  Sender: FDA-Public Use
  Company Number: US-CELGENEUS-USA-20210801522

PATIENT
  Age: 58 Year
  Sex: Female

DRUGS (1)
  1. ZEPOSIA [Suspect]
     Active Substance: OZANIMOD HYDROCHLORIDE
     Indication: RELAPSING MULTIPLE SCLEROSIS
     Dosage: .23 MILLIGRAM
     Route: 048
     Dates: start: 20210801

REACTIONS (2)
  - Heart rate decreased [Unknown]
  - Dizziness [Unknown]

NARRATIVE: CASE EVENT DATE: 20210802
